FAERS Safety Report 6307272-7 (Version None)
Quarter: 2009Q3

REPORT INFORMATION
  Report Type: 
  Country: None (occurrence: None)
  Receive Date: 20090813
  Receipt Date: 20090807
  Transmission Date: 20100115
  Serious: Yes (Hospitalization)
  Sender: FDA-Public Use
  Company Number: GB-TEVA-205356ISR

PATIENT
  Age: 75 Year
  Sex: Female
  Weight: 62 kg

DRUGS (2)
  1. TRIMETHOPRIM [Suspect]
     Indication: URINARY TRACT INFECTION
     Route: 048
     Dates: start: 20080530, end: 20080605
  2. STRONTIUM RANELATE [Suspect]
     Indication: OSTEOPOROSIS
     Route: 048
     Dates: end: 20080616

REACTIONS (2)
  - CONFUSIONAL STATE [None]
  - RASH MACULAR [None]
